FAERS Safety Report 13916660 (Version 2)
Quarter: 2017Q3

REPORT INFORMATION
  Report Type: Report from Study
  Country: US (occurrence: US)
  Receive Date: 20170829
  Receipt Date: 20170905
  Transmission Date: 20171127
  Serious: Yes (Other)
  Sender: FDA-Public Use
  Company Number: US-GILEAD-2017-0290063

PATIENT
  Age: 42 Year
  Sex: Female

DRUGS (20)
  1. PLAQUENIL                          /00072602/ [Concomitant]
     Active Substance: HYDROXYCHLOROQUINE DIPHOSPHATE
  2. VALTREX [Concomitant]
     Active Substance: VALACYCLOVIR HYDROCHLORIDE
  3. ACETAMINOPHEN AND CODEINE [Concomitant]
     Active Substance: ACETAMINOPHEN\CODEINE PHOSPHATE
  4. COUMADIN [Concomitant]
     Active Substance: WARFARIN SODIUM
  5. LOMOTIL [Concomitant]
     Active Substance: ATROPINE SULFATE\DIPHENOXYLATE HYDROCHLORIDE
  6. MYCOSTATIN [Concomitant]
     Active Substance: NYSTATIN
  7. AMBRISENTAN [Suspect]
     Active Substance: AMBRISENTAN
     Indication: PRODUCT USED FOR UNKNOWN INDICATION
     Dosage: 5 MG, QD
     Route: 048
     Dates: start: 20090626
  8. FLONASE                            /00908302/ [Concomitant]
     Active Substance: MOMETASONE FUROATE
  9. LASIX [Concomitant]
     Active Substance: FUROSEMIDE
  10. CELLCEPT [Concomitant]
     Active Substance: MYCOPHENOLATE MOFETIL\MYCOPHENOLATE MOFETIL HYDROCHLORIDE
  11. REMODULIN [Concomitant]
     Active Substance: TREPROSTINIL
  12. FOSAMAX [Concomitant]
     Active Substance: ALENDRONATE SODIUM
  13. OSCAL D [Concomitant]
     Active Substance: CALCIUM CARBONATE\CHOLECALCIFEROL
  14. FERROUS SULFATE. [Concomitant]
     Active Substance: FERROUS SULFATE
  15. IBUPROFEN. [Concomitant]
     Active Substance: IBUPROFEN
  16. ZOFRAN [Concomitant]
     Active Substance: ONDANSETRON HYDROCHLORIDE
  17. CHLORASEPTIC SORE THROAT [Concomitant]
     Active Substance: PHENOL
  18. DIGITEK [Concomitant]
     Active Substance: DIGOXIN
  19. PRILOSEC [Concomitant]
     Active Substance: OMEPRAZOLE MAGNESIUM
  20. DELTASONE [Concomitant]
     Active Substance: PREDNISONE

REACTIONS (1)
  - Systemic lupus erythematosus [Not Recovered/Not Resolved]
